FAERS Safety Report 7590953-5 (Version None)
Quarter: 2011Q3

REPORT INFORMATION
  Report Type: 
  Country: None (occurrence: None)
  Receive Date: 20110705
  Receipt Date: 20110628
  Transmission Date: 20111222
  Serious: Yes (Other)
  Sender: FDA-Public Use
  Company Number: PHHO2011FR09631

PATIENT
  Sex: Female
  Weight: 72 kg

DRUGS (7)
  1. NEORAL [Suspect]
     Indication: RENAL TRANSPLANT
     Dosage: 160 MG, BID
     Route: 048
     Dates: start: 20110308
  2. VALGANCICLOVIR [Suspect]
  3. MYCOPHENOLIC ACID [Suspect]
     Dosage: UNK
     Route: 048
     Dates: start: 20110607
  4. PREDNISOLONE [Concomitant]
     Indication: RENAL TRANSPLANT
     Dosage: 10 MG
     Route: 048
     Dates: start: 20110308, end: 20110531
  5. PREDNISOLONE [Concomitant]
     Dosage: 15 MG
     Route: 048
     Dates: start: 20110531
  6. MYCOPHENOLIC ACID [Suspect]
     Indication: RENAL TRANSPLANT
     Dosage: 720 MG, BID
     Route: 048
     Dates: start: 20110308, end: 20110527
  7. SULFAMETHOXAZOLE [Suspect]

REACTIONS (1)
  - AGRANULOCYTOSIS [None]
